FAERS Safety Report 9780489 (Version 1)
Quarter: 2013Q4

REPORT INFORMATION
  Report Type: Spontaneous
  Country: CH (occurrence: CH)
  Receive Date: 20131224
  Receipt Date: 20131224
  Transmission Date: 20140711
  Serious: Yes (Other)
  Sender: FDA-Public Use
  Company Number: CH-009507513-1312CHE009348

PATIENT
  Age: 78 Year
  Sex: Female
  Weight: 65 kg

DRUGS (6)
  1. JANUMET [Suspect]
     Indication: TYPE 2 DIABETES MELLITUS
     Dosage: 50MG/1000MG, BID
     Route: 048
     Dates: start: 2006
  2. ASPIRIN CARDIO [Concomitant]
     Dosage: 100 MG, QD
     Route: 048
  3. ATORVASTATIN [Concomitant]
     Dosage: 20 MG, QD
     Route: 048
  4. CONCOR [Concomitant]
     Dosage: 2.5 MG, QD
     Route: 048
  5. TRIATEC COMP [Concomitant]
     Dosage: 25MG/5MG, ONCE DAILY
     Route: 048
  6. TRIATEC (RAMIPRIL) [Concomitant]
     Dosage: 5 MG, QD
     Route: 048

REACTIONS (3)
  - Pancreatic neoplasm [Not Recovered/Not Resolved]
  - Diabetes mellitus [Unknown]
  - Diarrhoea [Unknown]
